FAERS Safety Report 11886797 (Version 1)
Quarter: 2016Q1

REPORT INFORMATION
  Report Type: Report from Study
  Country: US (occurrence: US)
  Receive Date: 20160104
  Receipt Date: 20160104
  Transmission Date: 20160526
  Serious: Yes (Hospitalization, Other)
  Sender: FDA-Public Use
  Company Number: US-UCBSA-2015043273

PATIENT
  Age: 3 Year
  Sex: Male

DRUGS (3)
  1. DEPAKOTE [Concomitant]
     Active Substance: DIVALPROEX SODIUM
     Indication: SEIZURE
     Dosage: UNK
     Dates: start: 201303, end: 2013
  2. CLONAZEPAM. [Suspect]
     Active Substance: CLONAZEPAM
     Indication: SEIZURE
     Dosage: UNK
     Dates: start: 2013, end: 2013
  3. LEVETIRACETAM. [Suspect]
     Active Substance: LEVETIRACETAM
     Indication: EPILEPSY
     Dosage: UNK
     Dates: end: 2013

REACTIONS (8)
  - Generalised tonic-clonic seizure [Recovered/Resolved]
  - Malaise [Unknown]
  - Somnolence [Unknown]
  - Contusion [Unknown]
  - Feeling drunk [Unknown]
  - Fall [Unknown]
  - Myoclonic epilepsy [Unknown]
  - Atonic seizures [Recovered/Resolved]

NARRATIVE: CASE EVENT DATE: 2013
